FAERS Safety Report 25207015 (Version 1)
Quarter: 2025Q2

REPORT INFORMATION
  Report Type: Spontaneous
  Country: US (occurrence: US)
  Receive Date: 20250417
  Receipt Date: 20250417
  Transmission Date: 20250717
  Serious: Yes (Other)
  Sender: MERCK SHARP AND DOHME
  Company Number: US-009507513-2277176

PATIENT
  Sex: Male

DRUGS (2)
  1. DIFICID [Suspect]
     Active Substance: FIDAXOMICIN
     Indication: Clostridium difficile infection
     Dates: start: 20231228, end: 20231228
  2. ZINPLAVA [Suspect]
     Active Substance: BEZLOTOXUMAB
     Indication: Product used for unknown indication
     Dates: start: 20240417, end: 20240417

REACTIONS (5)
  - Clostridium difficile infection [Recovered/Resolved]
  - Pneumonia [Unknown]
  - Clostridium difficile infection [Recovered/Resolved]
  - Urticaria [Unknown]
  - Stress [Unknown]

NARRATIVE: CASE EVENT DATE: 20231228
